FAERS Safety Report 8431520-0 (Version None)
Quarter: 2012Q2

REPORT INFORMATION
  Report Type: 
  Country: None (occurrence: None)
  Receive Date: 20120323
  Receipt Date: 20110620
  Transmission Date: 20120825
  Serious: Yes (Hospitalization)
  Sender: FDA-Public Use
  Company Number: 163-21880-11062670

PATIENT
  Age: 77 Year
  Sex: Female

DRUGS (8)
  1. NTG (GLYCERYL TRINITRATE) [Concomitant]
  2. PLAVIX [Concomitant]
  3. PEPCID [Concomitant]
  4. NORVASC [Concomitant]
  5. REVLIMID [Suspect]
     Indication: MULTIPLE MYELOMA
     Dosage: 7.5 MG, 1 IN 2 D, PO 5 MG, PO
     Route: 048
     Dates: start: 20110501
  6. REVLIMID [Suspect]
     Indication: MULTIPLE MYELOMA
     Dosage: 7.5 MG, 1 IN 2 D, PO 5 MG, PO
     Route: 048
     Dates: start: 20110101
  7. METOPROLOL TARTRATE [Concomitant]
  8. WARFARIN SODIUM [Concomitant]

REACTIONS (1)
  - RENAL FAILURE [None]
